FAERS Safety Report 10261275 (Version 2)
Quarter: 2014Q3

REPORT INFORMATION
  Report Type: Spontaneous
  Country: US (occurrence: US)
  Receive Date: 20140626
  Receipt Date: 20140702
  Transmission Date: 20150326
  Serious: Yes (Other)
  Sender: FDA-Public Use
  Company Number: US-BAUSCH-BL-2014-002921

PATIENT
  Age: 5 Decade
  Sex: Female

DRUGS (2)
  1. MITOMYCIN C [Suspect]
     Active Substance: MITOMYCIN
     Indication: PRODUCT USED FOR UNKNOWN INDICATION
     Route: 047
     Dates: start: 201403
  2. BESIVANCE [Suspect]
     Active Substance: BESIFLOXACIN
     Indication: PRODUCT USED FOR UNKNOWN INDICATION
     Route: 047
     Dates: start: 201403

REACTIONS (4)
  - Corneal dystrophy [Unknown]
  - Corneal oedema [Unknown]
  - Impaired healing [Unknown]
  - Corneal opacity [Recovering/Resolving]

NARRATIVE: CASE EVENT DATE: 2014
